FAERS Safety Report 5736959-X (Version None)
Quarter: 2008Q2

REPORT INFORMATION
  Report Type: 
  Country: None (occurrence: None)
  Receive Date: 20080512
  Receipt Date: 20080512
  Transmission Date: 20081010
  Serious: Yes (Hospitalization)
  Sender: FDA-Public Use
  Company Number: None

PATIENT
  Age: 58 Year
  Sex: Female
  Weight: 43 kg

DRUGS (2)
  1. BC POWDER HEADACHE, FEVER, 650 MG ASA/PACKET GLAXOSMITHKLINE [Suspect]
     Indication: BACK PAIN
     Dosage: 1 PACKET PRN PO
     Route: 048
     Dates: start: 20080505, end: 20080507
  2. BC POWDER HEADACHE, FEVER, 650 MG ASA/PACKET GLAXOSMITHKLINE [Suspect]
     Indication: NECK PAIN
     Dosage: 1 PACKET PRN PO
     Route: 048
     Dates: start: 20080505, end: 20080507

REACTIONS (4)
  - ANALGESIC DRUG LEVEL ABOVE THERAPEUTIC [None]
  - CONFUSIONAL STATE [None]
  - HEARING IMPAIRED [None]
  - MEDICATION ERROR [None]
